FAERS Safety Report 7681471-4 (Version None)
Quarter: 2011Q3

REPORT INFORMATION
  Report Type: 
  Country: None (occurrence: None)
  Receive Date: 20110812
  Receipt Date: 20110804
  Transmission Date: 20111222
  Serious: Yes (Other)
  Sender: FDA-Public Use
  Company Number: PHEH2011US00733

PATIENT
  Sex: Female

DRUGS (5)
  1. TRAZODONE HCL [Concomitant]
     Dosage: UNK UKN, ONCE IN NIGHT
  2. DIOVAN [Suspect]
     Dosage: 160 MG, QD
     Dates: start: 20110804
  3. AMLODIPINE [Suspect]
     Dosage: UNK UKN, UNK
  4. TRIAM [Concomitant]
     Dosage: 1 DF, 37.5 TRIAMCINOLONE AND /25MG ACETONIDE ONCE A DAY
  5. SIMVASTATIN [Suspect]
     Dosage: 20 MG, UNK

REACTIONS (8)
  - ARRHYTHMIA [None]
  - DIZZINESS [None]
  - POLLAKIURIA [None]
  - HYPOTONIA [None]
  - TREMOR [None]
  - PALPITATIONS [None]
  - HEADACHE [None]
  - ABDOMINAL PAIN UPPER [None]
